FAERS Safety Report 4550899-3 (Version None)
Quarter: 2004Q4

REPORT INFORMATION
  Report Type: 
  Country: None (occurrence: None)
  Receive Date: 20041217
  Receipt Date: 20040903
  Transmission Date: 20050328
  Serious: No
  Sender: FDA-Public Use
  Company Number: 2004-BP-07978BP

PATIENT
  Sex: Female

DRUGS (9)
  1. SPIRIVA [Suspect]
     Indication: ASTHMA
     Dosage: 18 MCG (18 MCG), IH
     Route: 055
     Dates: start: 20040629, end: 20040814
  2. SPIRIVA [Suspect]
     Indication: BRONCHITIS
     Dosage: 18 MCG (18 MCG), IH
     Route: 055
     Dates: start: 20040629, end: 20040814
  3. ADVAIR (SERETIDE MITE) [Concomitant]
  4. SINGULAIR [Concomitant]
  5. VOLMAX [Concomitant]
  6. ALBUTEROL [Concomitant]
  7. PREVACID [Concomitant]
  8. ZYRTEC [Concomitant]
  9. NASONEX [Concomitant]

REACTIONS (4)
  - CHAPPED LIPS [None]
  - LIP DRY [None]
  - PAIN [None]
  - SWELLING [None]
